FAERS Safety Report 13978009 (Version 1)
Quarter: 2017Q3

REPORT INFORMATION
  Report Type: Spontaneous
  Country: CA (occurrence: CA)
  Receive Date: 20170915
  Receipt Date: 20170915
  Transmission Date: 20171128
  Serious: Yes (Other)
  Sender: FDA-Public Use
  Company Number: CA-PFIZER INC-2012061322

PATIENT
  Age: 3 Year
  Sex: Male

DRUGS (3)
  1. MEROPENEM. [Suspect]
     Active Substance: MEROPENEM
     Dosage: UNK
     Route: 042
  2. VANCOMYCIN HCL [Suspect]
     Active Substance: VANCOMYCIN HYDROCHLORIDE
     Indication: BRAIN ABSCESS
  3. VANCOMYCIN HCL [Suspect]
     Active Substance: VANCOMYCIN HYDROCHLORIDE
     Indication: SHUNT INFECTION
     Dosage: UNK

REACTIONS (3)
  - Serum sickness-like reaction [Recovered/Resolved]
  - Pancytopenia [Unknown]
  - Coagulopathy [Unknown]
